FAERS Safety Report 25533107 (Version 1)
Quarter: 2025Q3

REPORT INFORMATION
  Report Type: Spontaneous
  Country: US (occurrence: US)
  Receive Date: 20250709
  Receipt Date: 20250709
  Transmission Date: 20251021
  Serious: Yes (Hospitalization, Other)
  Sender: TAKEDA
  Company Number: US-TAKEDA-2025TUS061245

PATIENT
  Age: 41 Year
  Sex: Female
  Weight: 113 kg

DRUGS (1)
  1. ENTYVIO [Suspect]
     Active Substance: VEDOLIZUMAB
     Indication: Crohn^s disease
     Dosage: UNK UNK, Q7WEEKS
     Dates: start: 20210112, end: 20250219

REACTIONS (10)
  - Lymphadenopathy [Recovering/Resolving]
  - Neck pain [Unknown]
  - Swelling [Unknown]
  - Dehydration [Unknown]
  - Electrolyte imbalance [Unknown]
  - Tongue geographic [Unknown]
  - Oropharyngeal discomfort [Unknown]
  - Musculoskeletal discomfort [Unknown]
  - Fatigue [Unknown]
  - Oropharyngeal pain [Unknown]

NARRATIVE: CASE EVENT DATE: 20250221
